FAERS Safety Report 19000629 (Version 1)
Quarter: 2021Q1

REPORT INFORMATION
  Report Type: Spontaneous
  Country: US (occurrence: US)
  Receive Date: 20210311
  Receipt Date: 20210311
  Transmission Date: 20210420
  Serious: No
  Sender: FDA-Public Use
  Company Number: US-US-PROVELL PHARMACEUTICALS LLC-9221890

PATIENT

DRUGS (1)
  1. EUTHYROX [Suspect]
     Active Substance: LEVOTHYROXINE SODIUM
     Indication: PRODUCT USED FOR UNKNOWN INDICATION

REACTIONS (7)
  - Insomnia [Unknown]
  - Temperature intolerance [Unknown]
  - Urticaria [Unknown]
  - Chest pain [Unknown]
  - Palpitations [Unknown]
  - Hyperhidrosis [Unknown]
  - Pain [Unknown]
